FAERS Safety Report 4265305-6 (Version None)
Quarter: 2004Q1

REPORT INFORMATION
  Report Type: 
  Country: None (occurrence: None)
  Receive Date: 20040107
  Receipt Date: 20040107
  Transmission Date: 20041129
  Serious: Yes (Other)
  Sender: FDA-Public Use
  Company Number: None

PATIENT
  Age: 60 Year
  Sex: Female

DRUGS (2)
  1. COUMADIN [Suspect]
     Indication: PNEUMONIA
     Dosage: TABLET
  2. ZITHROMAX [Suspect]
     Dosage: TABLET

REACTIONS (2)
  - INTERNATIONAL NORMALISED RATIO INCREASED [None]
  - MEDICATION ERROR [None]
